FAERS Safety Report 6191491-7 (Version None)
Quarter: 2009Q2

REPORT INFORMATION
  Report Type: 
  Country: None (occurrence: None)
  Receive Date: 20090515
  Receipt Date: 20090511
  Transmission Date: 20091009
  Serious: Yes (Death, Other)
  Sender: FDA-Public Use
  Company Number: JP-BAYER-200911454BYL

PATIENT
  Age: 62 Year
  Sex: Male
  Weight: 52 kg

DRUGS (6)
  1. NEXAVAR [Suspect]
     Indication: RENAL CELL CARCINOMA STAGE IV
     Dosage: TOTAL DAILY DOSE: 800 MG  UNIT DOSE: 200 MG
     Route: 048
     Dates: start: 20090414, end: 20090427
  2. NEXAVAR [Suspect]
     Dosage: UNIT DOSE: 200 MG
     Route: 048
     Dates: start: 20090428, end: 20090501
  3. NEXAVAR [Suspect]
     Dosage: UNIT DOSE: 200 MG
     Route: 048
     Dates: start: 20090508, end: 20090509
  4. MYSLEE [Concomitant]
     Route: 048
     Dates: start: 20090415
  5. PENCLUSIN [Concomitant]
     Route: 048
     Dates: start: 20090416
  6. MILTAX [Concomitant]
     Route: 062
     Dates: start: 20090419

REACTIONS (7)
  - BONE MARROW FAILURE [None]
  - CARDIAC FAILURE CONGESTIVE [None]
  - GINGIVAL BLEEDING [None]
  - HYPERTENSION [None]
  - NAUSEA [None]
  - PALMAR-PLANTAR ERYTHRODYSAESTHESIA SYNDROME [None]
  - RASH [None]
